FAERS Safety Report 12982504 (Version 1)
Quarter: 2016Q4

REPORT INFORMATION
  Report Type: Spontaneous
  Country: US (occurrence: US)
  Receive Date: 20161128
  Receipt Date: 20161128
  Transmission Date: 20170207
  Serious: Yes (Disabling)
  Sender: FDA-Public Use
  Company Number: None

PATIENT
  Age: 64 Year
  Sex: Female

DRUGS (2)
  1. NORVASC [Concomitant]
     Active Substance: AMLODIPINE BESYLATE
  2. CIPROFLOXACIN. [Suspect]
     Active Substance: CIPROFLOXACIN

REACTIONS (7)
  - Arthralgia [None]
  - Tendon pain [None]
  - Pain in extremity [None]
  - Fatigue [None]
  - Musculoskeletal pain [None]
  - Joint range of motion decreased [None]
  - Activities of daily living impaired [None]

NARRATIVE: CASE EVENT DATE: 20160718
